FAERS Safety Report 6483889-4 (Version None)
Quarter: 2009Q4

REPORT INFORMATION
  Report Type: 
  Country: None (occurrence: None)
  Receive Date: 20091123
  Receipt Date: 20090724
  Transmission Date: 20100525
  Serious: No
  Sender: FDA-Public Use
  Company Number: 8049422

PATIENT
  Age: 24 Year
  Sex: Female
  Weight: 50.8 kg

DRUGS (7)
  1. CIMZIA [Suspect]
     Indication: CROHN'S DISEASE
     Dosage: 400 MG SC
     Route: 058
     Dates: start: 20090530, end: 20090724
  2. CIMZIA [Suspect]
     Indication: CROHN'S DISEASE
     Dosage: 400 MG SC
     Route: 058
     Dates: start: 20090727
  3. ENTOCORT EC [Concomitant]
  4. ZOLOFT [Concomitant]
  5. PRILOSEC [Concomitant]
  6. MERCAPTOPURINE [Concomitant]
  7. LOW-OGESTREL-21 [Concomitant]

REACTIONS (5)
  - DECREASED APPETITE [None]
  - DIARRHOEA [None]
  - NAUSEA [None]
  - PYREXIA [None]
  - VOMITING [None]
